FAERS Safety Report 5700135-7 (Version None)
Quarter: 2008Q2

REPORT INFORMATION
  Report Type: 
  Country: None (occurrence: None)
  Receive Date: 20080410
  Receipt Date: 20080404
  Transmission Date: 20081010
  Serious: Yes (Hospitalization, Other)
  Sender: FDA-Public Use
  Company Number: PHEH2004US09204

PATIENT

DRUGS (20)
  1. ESTRADERM [Suspect]
     Indication: MENOPAUSE
     Dosage: 0.1MG BIWEEKLY FOR 3 WEEKS
     Route: 061
     Dates: start: 19920101, end: 19970101
  2. PROVERA [Suspect]
     Dosage: 10MG, UNK
     Dates: start: 19840101, end: 19980101
  3. MPA [Suspect]
     Indication: HORMONE REPLACEMENT THERAPY
     Dosage: 10 MG, UNK
     Dates: start: 19840101, end: 19980101
  4. PREMPRO [Suspect]
     Dosage: .625MG/2.5MG
     Dates: start: 19980126, end: 19981021
  5. PREMPRO [Suspect]
     Dosage: .625MG/5MG
     Dates: start: 19981116, end: 20001019
  6. PREMARIN [Suspect]
  7. PROZAC [Concomitant]
     Dosage: 20MG UNK
  8. TAMOXIFEN CITRATE [Concomitant]
     Indication: BREAST CANCER
     Dosage: 10MG QD
     Dates: start: 20010201
  9. HYDROCODONE BITARTRATE [Concomitant]
  10. BACLOFEN [Concomitant]
  11. EFFEXOR [Concomitant]
  12. DITROPAN [Concomitant]
  13. TEMAZEPAM [Concomitant]
  14. ZYPREXA [Concomitant]
  15. COPAXONE [Concomitant]
  16. VITAMIN CAP [Concomitant]
  17. TOPROL-XL [Concomitant]
  18. CLONAZEPAM [Concomitant]
  19. PROVIGIL [Concomitant]
  20. SIMVASTATIN [Concomitant]

REACTIONS (50)
  - ANGLE CLOSURE GLAUCOMA [None]
  - ATRIAL TACHYCARDIA [None]
  - BALANCE DISORDER [None]
  - BLOOD CHOLESTEROL INCREASED [None]
  - BREAST CALCIFICATIONS [None]
  - BREAST CANCER [None]
  - BREAST MASS [None]
  - CHEST PAIN [None]
  - CHOLECYSTECTOMY [None]
  - CHOLECYSTITIS [None]
  - CHOLELITHIASIS [None]
  - CORNEAL DISORDER [None]
  - DEPRESSION [None]
  - DIPLOPIA [None]
  - DYSPHAGIA [None]
  - EPICONDYLITIS [None]
  - FAECAL INCONTINENCE [None]
  - FALL [None]
  - FATIGUE [None]
  - GAIT DISTURBANCE [None]
  - GALLBLADDER DISORDER [None]
  - GASTROINTESTINAL MOTILITY DISORDER [None]
  - GASTROOESOPHAGEAL REFLUX DISEASE [None]
  - HEPATIC ENZYME INCREASED [None]
  - HEPATITIS [None]
  - IRIDECTOMY [None]
  - ISCHAEMIA [None]
  - LYMPHADENECTOMY [None]
  - MALIGNANT BREAST LUMP REMOVAL [None]
  - MITRAL VALVE INCOMPETENCE [None]
  - MULTIPLE SCLEROSIS [None]
  - MUSCLE SPASMS [None]
  - MUSCLE SPASTICITY [None]
  - MUSCULAR WEAKNESS [None]
  - MUSCULOSKELETAL STIFFNESS [None]
  - MYALGIA [None]
  - NEUROGENIC BLADDER [None]
  - NODULE [None]
  - OSTEOARTHRITIS [None]
  - OSTEOPENIA [None]
  - PAIN IN EXTREMITY [None]
  - RADIOTHERAPY [None]
  - SEROMA [None]
  - SPEECH DISORDER [None]
  - SPLEEN DISORDER [None]
  - SUPRAVENTRICULAR TACHYCARDIA [None]
  - TRICUSPID VALVE INCOMPETENCE [None]
  - UPPER RESPIRATORY TRACT INFECTION [None]
  - URINARY INCONTINENCE [None]
  - WHEELCHAIR USER [None]
